FAERS Safety Report 11789066 (Version 1)
Quarter: 2015Q4

REPORT INFORMATION
  Report Type: Report from Study
  Country: JP (occurrence: JP)
  Receive Date: 20151201
  Receipt Date: 20151201
  Transmission Date: 20160305
  Serious: Yes (Other)
  Sender: FDA-Public Use
  Company Number: JP-AMGEN-JPNNI2015127740

PATIENT
  Sex: Female
  Weight: 60 kg

DRUGS (5)
  1. DENOTAS [Concomitant]
     Active Substance: CALCIUM CARBONATE\CHOLECALCIFEROL\MAGNESIUM CARBONATE
     Dosage: 2 DF, QD
     Route: 048
     Dates: start: 20130709, end: 20140617
  2. FARESTON [Concomitant]
     Active Substance: TOREMIFENE CITRATE
     Dosage: UNK
     Route: 065
     Dates: start: 20140716
  3. DENOSUMAB [Suspect]
     Active Substance: DENOSUMAB
     Indication: METASTASES TO BONE
     Dosage: 120 MG, UNK
     Route: 058
     Dates: start: 20120809
  4. NOLVADEX                           /00388702/ [Concomitant]
     Dosage: UNK
     Route: 065
     Dates: start: 20140129, end: 20140715
  5. FEMARA [Concomitant]
     Active Substance: LETROZOLE
     Dosage: UNK
     Route: 065
     Dates: start: 20120810, end: 20140115

REACTIONS (1)
  - Osteonecrosis of jaw [Not Recovered/Not Resolved]

NARRATIVE: CASE EVENT DATE: 20140617
